FAERS Safety Report 9470742 (Version 1)
Quarter: 2013Q3

REPORT INFORMATION
  Report Type: Spontaneous
  Country: US (occurrence: US)
  Receive Date: 20130822
  Receipt Date: 20130822
  Transmission Date: 20140515
  Serious: Yes (Other)
  Sender: FDA-Public Use
  Company Number: US-SANOFI-AVENTIS-2013SA055179

PATIENT
  Sex: Female

DRUGS (4)
  1. ZALTRAP [Suspect]
  2. IRINOTECAN [Suspect]
  3. LEUCOVORIN [Suspect]
  4. 5-FU [Suspect]

REACTIONS (1)
  - Disease progression [Unknown]
